FAERS Safety Report 6469187-3 (Version None)
Quarter: 2009Q4

REPORT INFORMATION
  Report Type: 
  Country: None (occurrence: None)
  Receive Date: 20091203
  Receipt Date: 20080121
  Transmission Date: 20100525
  Serious: Yes (Hospitalization)
  Sender: FDA-Public Use
  Company Number: US-ELI_LILLY_AND_COMPANY-US200706004733

PATIENT
  Sex: Female
  Weight: 102.95 kg

DRUGS (12)
  1. LANTUS [Suspect]
     Indication: TYPE 2 DIABETES MELLITUS
     Dosage: 18 IU, DAILY (1/D)
     Route: 058
     Dates: start: 20070205
  2. ALISKIREN [Concomitant]
     Indication: HYPERTENSION
     Dates: start: 20070521, end: 20070604
  3. GLYBURIDE (MICRONIZED) [Concomitant]
     Indication: DIABETES MELLITUS
     Dates: start: 20061001
  4. ACTOS [Concomitant]
     Indication: DIABETES MELLITUS
     Dates: start: 20060301
  5. SIMVASTATIN [Concomitant]
     Indication: HYPERLIPIDAEMIA
     Dates: start: 20031201
  6. AVAPRO [Concomitant]
     Indication: HYPERTENSION
     Dates: start: 20060101
  7. CENTRUM SILVER [Concomitant]
     Indication: SUPPLEMENTATION THERAPY
     Dates: start: 20030101
  8. ALEVE [Concomitant]
     Indication: ARTHRITIS
     Dates: start: 20061001
  9. TYLENOL [Concomitant]
     Indication: ARTHRITIS
     Dates: start: 20011001
  10. POTASSIUM GLUCONATE TAB [Concomitant]
     Indication: SUPPLEMENTATION THERAPY
     Dates: start: 20050101
  11. PRILOSEC [Concomitant]
     Indication: GASTROOESOPHAGEAL REFLUX DISEASE
     Dates: start: 20000101
  12. VITAMIN B NOS [Concomitant]
     Indication: SUPPLEMENTATION THERAPY
     Dates: start: 20070305

REACTIONS (2)
  - DYSPNOEA [None]
  - NON-CARDIAC CHEST PAIN [None]
